FAERS Safety Report 14814197 (Version 3)
Quarter: 2019Q1

REPORT INFORMATION
  Report Type: Report from Study
  Country: DE (occurrence: DE)
  Receive Date: 20180426
  Receipt Date: 20190111
  Transmission Date: 20190417
  Serious: Yes (Hospitalization, Other)
  Sender: FDA-Public Use
  Company Number: DE-ACCORD-066055

PATIENT
  Age: 64 Year
  Sex: Male
  Weight: 59 kg

DRUGS (6)
  1. PEGYLATED LIPOSOMAL IRINOTECAN [Suspect]
     Active Substance: IRINOTECAN HYDROCHLORIDE
     Indication: COLORECTAL CANCER METASTATIC
     Dosage: NOT REPORTED
     Route: 041
     Dates: start: 20150202, end: 20150202
  2. AFLIBERCEPT [Suspect]
     Active Substance: AFLIBERCEPT
     Indication: COLORECTAL CANCER METASTATIC
     Dosage: DAILY DOSE: 252 MG MILLIGRAM(S) EVERY
     Route: 041
     Dates: start: 20150202, end: 20150202
  3. LEUCOVORIN. [Suspect]
     Active Substance: LEUCOVORIN
     Indication: COLORECTAL CANCER METASTATIC
     Dosage: DAILY DOSE: 273 MG MILLIGRAM(S) EVERY
     Route: 041
     Dates: start: 20150202, end: 20150202
  4. PANTOPRAZOLE [Concomitant]
     Active Substance: PANTOPRAZOLE
     Indication: PROPHYLAXIS AGAINST GASTROINTESTINAL ULCER
     Route: 065
     Dates: start: 2014
  5. IRINOTECAN [Suspect]
     Active Substance: IRINOTECAN
     Indication: COLORECTAL CANCER METASTATIC
     Dosage: DAILY DOSE: 110 MG MILLIGRAM(S) EVERY
     Route: 041
     Dates: start: 20150202, end: 20150202
  6. FLUOROURACIL. [Suspect]
     Active Substance: FLUOROURACIL
     Indication: COLORECTAL CANCER METASTATIC
     Route: 041
     Dates: start: 20150202, end: 20150202

REACTIONS (3)
  - Dehydration [Recovered/Resolved]
  - Acute hepatic failure [Not Recovered/Not Resolved]
  - Pulmonary embolism [Recovered/Resolved]

NARRATIVE: CASE EVENT DATE: 20150209
